FAERS Safety Report 9848270 (Version 1)
Quarter: 2014Q1

REPORT INFORMATION
  Report Type: Spontaneous
  Country: US (occurrence: US)
  Receive Date: 20140128
  Receipt Date: 20140128
  Transmission Date: 20141002
  Serious: Yes (Other)
  Sender: FDA-Public Use
  Company Number: US-TEVA-458942USA

PATIENT
  Age: 35 Year
  Sex: Female

DRUGS (1)
  1. PARAGARD 380A [Suspect]
     Indication: CONTRACEPTION
     Route: 015

REACTIONS (4)
  - Device dislocation [Recovered/Resolved]
  - Embedded device [Unknown]
  - Medical device complication [Recovered/Resolved]
  - Device breakage [Unknown]
